FAERS Safety Report 14640992 (Version 2)
Quarter: 2019Q1

REPORT INFORMATION
  Report Type: Spontaneous
  Country: US (occurrence: US)
  Receive Date: 20180315
  Receipt Date: 20190304
  Transmission Date: 20190417
  Serious: No
  Sender: FDA-Public Use
  Company Number: US-PFIZER INC-2018108312

PATIENT
  Age: 61 Year
  Sex: Female

DRUGS (6)
  1. FLEXERIL [CEFIXIME] [Suspect]
     Active Substance: CEFIXIME
     Dosage: UNK
  2. NEOSPORIN [Suspect]
     Active Substance: BACITRACIN ZINC\NEOMYCIN SULFATE\POLYMYXIN B SULFATE
     Dosage: UNK
  3. VITAMIN C [Suspect]
     Active Substance: ASCORBIC ACID
     Dosage: UNK
  4. PENICILLIN G BENZATHINE/PENICILLIN G PROCAINE [Suspect]
     Active Substance: PENICILLIN G BENZATHINE\PENICILLIN G PROCAINE
     Dosage: UNK
  5. BENZYLPENICILLIN POTASSIUM [Suspect]
     Active Substance: PENICILLIN G POTASSIUM
     Dosage: UNK
  6. PENICILLIN G BENZATHINE [Suspect]
     Active Substance: PENICILLIN G BENZATHINE
     Dosage: UNK

REACTIONS (1)
  - Drug hypersensitivity [Unknown]
